FAERS Safety Report 8173790-2 (Version None)
Quarter: 2012Q1

REPORT INFORMATION
  Report Type: 
  Country: None (occurrence: None)
  Receive Date: 20120229
  Receipt Date: 20120216
  Transmission Date: 20120608
  Serious: Yes (Other)
  Sender: FDA-Public Use
  Company Number: US-ELI_LILLY_AND_COMPANY-US200902006692

PATIENT
  Age: 53 Year
  Sex: Female

DRUGS (3)
  1. ATIVAN [Concomitant]
  2. ZYPREXA [Suspect]
     Indication: SCHIZOPHRENIA, DISORGANISED TYPE
     Dosage: 20 MG, DAILY (1/D)
     Dates: start: 20010101
  3. CLONOPIN [Concomitant]
     Dates: end: 20010101

REACTIONS (12)
  - LACERATION [None]
  - DEMENTIA ALZHEIMER'S TYPE [None]
  - DRUG DEPENDENCE [None]
  - BRADYPHRENIA [None]
  - APHASIA [None]
  - IMMUNE SYSTEM DISORDER [None]
  - WEIGHT INCREASED [None]
  - SENSATION OF HEAVINESS [None]
  - PAIN IN EXTREMITY [None]
  - COGNITIVE DISORDER [None]
  - INTENTIONAL DRUG MISUSE [None]
  - HAEMORRHAGIC DIATHESIS [None]
